FAERS Safety Report 5760522-8 (Version None)
Quarter: 2008Q2

REPORT INFORMATION
  Report Type: 
  Country: None (occurrence: None)
  Receive Date: 20080602
  Receipt Date: 20080515
  Transmission Date: 20081010
  Serious: Yes (Death)
  Sender: FDA-Public Use
  Company Number: 2008AL005219

PATIENT
  Age: 67 Year
  Sex: Male
  Weight: 71.6683 kg

DRUGS (6)
  1. DIGOXIN [Suspect]
     Indication: ARRHYTHMIA
     Dosage: 0.125 MG, DAILY, PO
     Route: 048
     Dates: start: 20080321
  2. FUROSEMIDE [Concomitant]
  3. POTASSIUM CHLORIDE [Concomitant]
  4. WARFARIN [Concomitant]
  5. SIMVASTATIN [Concomitant]
  6. AMIODARONE HCL [Concomitant]

REACTIONS (7)
  - BLOOD PRESSURE DECREASED [None]
  - DIARRHOEA [None]
  - HEART RATE DECREASED [None]
  - NAUSEA [None]
  - OEDEMA PERIPHERAL [None]
  - SOMNOLENCE [None]
  - VISION BLURRED [None]
